FAERS Safety Report 10571177 (Version 1)
Quarter: 2014Q4

REPORT INFORMATION
  Report Type: Spontaneous
  Country: DK (occurrence: DK)
  Receive Date: 20141107
  Receipt Date: 20141107
  Transmission Date: 20150529
  Serious: Yes (Hospitalization, Other)
  Sender: FDA-Public Use
  Company Number: DK-BRISTOL-MYERS SQUIBB COMPANY-21549431

PATIENT
  Age: 47 Year
  Sex: Female

DRUGS (3)
  1. QUILONUM [Concomitant]
     Active Substance: LITHIUM CARBONATE
  2. ABILIFY [Suspect]
     Active Substance: ARIPIPRAZOLE
     Dosage: 1SEP14:5MG?9SEP14:7.5MG?12SEP14:10MG?20SEP14:20MG?25SEP14:15MG
     Route: 048
     Dates: start: 20140901
  3. CITALOPRAM [Concomitant]
     Active Substance: CITALOPRAM HYDROBROMIDE

REACTIONS (1)
  - Paraesthesia [Recovered/Resolved]

NARRATIVE: CASE EVENT DATE: 20140924
